FAERS Safety Report 7789392-3 (Version None)
Quarter: 2011Q3

REPORT INFORMATION
  Report Type: 
  Country: None (occurrence: None)
  Receive Date: 20110930
  Receipt Date: 20110929
  Transmission Date: 20111222
  Serious: Yes (Other)
  Sender: FDA-Public Use
  Company Number: US-BAYER-200936651NA

PATIENT
  Age: 55 Year
  Sex: Female
  Weight: 73.469 kg

DRUGS (15)
  1. TRASYLOL [Suspect]
     Dosage: 200 ML, UNK, CARDIOPULMONARY BYPASS PRIME
     Route: 042
     Dates: start: 20060109, end: 20060109
  2. LASIX [Concomitant]
     Dosage: UNK
     Dates: start: 19920101
  3. PROTAMINE [Concomitant]
     Dosage: 300 MG, UNK
     Dates: start: 20060109
  4. DOBUTREX [Concomitant]
  5. DOBUTAMINE HCL [Concomitant]
  6. COUMADIN [Concomitant]
     Dosage: UNK
     Dates: start: 20060101
  7. BENADRYL [Concomitant]
     Dosage: 50 MG, UNK
     Dates: start: 20060109
  8. AVAPRO [Concomitant]
     Dosage: UNK
     Dates: start: 20030101
  9. SIMVASTATIN [Concomitant]
  10. AMOXICILLIN [Concomitant]
     Dosage: UNK
     Dates: start: 20060101
  11. LIDOCAINE [Concomitant]
     Dosage: 100 MG, UNK
     Dates: start: 20060109
  12. MANNITOL [Concomitant]
     Dosage: 12.5 G, UNK
     Dates: start: 20060109
  13. LEVOPHED [Concomitant]
  14. NIPRIDE [Concomitant]
  15. TRASYLOL [Suspect]
     Indication: PRODUCT USED FOR UNKNOWN INDICATION
     Dosage: 200 ML LOADING DOSE FOLLOWED BY 50 ML/HOUR INFUSION
     Route: 042
     Dates: start: 20060109, end: 20060109

REACTIONS (11)
  - INJURY [None]
  - STRESS [None]
  - UNEVALUABLE EVENT [None]
  - FEAR [None]
  - ANHEDONIA [None]
  - RENAL INJURY [None]
  - EMOTIONAL DISTRESS [None]
  - ANXIETY [None]
  - PAIN [None]
  - RENAL FAILURE [None]
  - DIABETES MELLITUS [None]
